FAERS Safety Report 4788409-8 (Version None)
Quarter: 2005Q3

REPORT INFORMATION
  Report Type: 
  Country: None (occurrence: None)
  Receive Date: 20050920
  Receipt Date: 20040921
  Transmission Date: 20060218
  Serious: Yes (Hospitalization)
  Sender: FDA-Public Use
  Company Number: S04-USA-06317-01

PATIENT
  Age: 88 Year
  Sex: Female

DRUGS (16)
  1. CELEXA [Suspect]
     Indication: DEPRESSION
     Dosage: 20 MG QD PO
     Route: 048
     Dates: start: 20040901
  2. ARICEPT [Suspect]
     Indication: DEMENTIA
     Dates: end: 20040901
  3. REQUIP [Concomitant]
  4. CARBIDOPA [Concomitant]
  5. TIMOPTIC [Concomitant]
  6. MAXZIDE [Concomitant]
  7. PHENERGAN [Concomitant]
  8. ZOFRAN [Concomitant]
  9. DARVON 65 [Concomitant]
  10. COZAAR [Concomitant]
  11. TYLENOL [Concomitant]
  12. OXYTROL [Concomitant]
  13. PROTONIX [Concomitant]
  14. HALDOL [Concomitant]
  15. K-PHOR [Concomitant]
  16. ZYVOX [Concomitant]

REACTIONS (1)
  - INAPPROPRIATE ANTIDIURETIC HORMONE SECRETION [None]
